FAERS Safety Report 5886490-6 (Version None)
Quarter: 2008Q3

REPORT INFORMATION
  Report Type: 
  Country: None (occurrence: None)
  Receive Date: 20080917
  Receipt Date: 20080910
  Transmission Date: 20090109
  Serious: Yes (Death, Hospitalization)
  Sender: FDA-Public Use
  Company Number: FR-MERCK-0804USA00507

PATIENT
  Age: 85 Year
  Sex: Male

DRUGS (16)
  1. MODURETIC 5-50 [Suspect]
     Route: 048
     Dates: end: 20071219
  2. MORPHINE SULFATE [Suspect]
     Route: 065
     Dates: end: 20071219
  3. MORPHINE SULFATE [Suspect]
     Route: 065
  4. ALDACTONE [Suspect]
     Indication: CARDIAC FAILURE
     Route: 065
     Dates: start: 20071206, end: 20071219
  5. PERINDOPRIL ERBUMINE [Suspect]
     Indication: CARDIAC FAILURE
     Route: 065
     Dates: start: 20071206, end: 20071219
  6. DURAGESIC-100 [Suspect]
     Route: 065
     Dates: start: 20071201, end: 20071216
  7. DURAGESIC-100 [Suspect]
     Route: 065
     Dates: start: 20071217, end: 20071219
  8. LANSOPRAZOLE [Concomitant]
     Route: 065
  9. ASPIRIN [Concomitant]
     Route: 065
  10. NITROGLYCERIN [Concomitant]
     Route: 065
  11. MOLSIDOMINE [Concomitant]
     Route: 065
  12. FUROSEMIDE [Concomitant]
     Route: 065
  13. MANIDIPINE HYDROCHLORIDE [Concomitant]
     Route: 065
  14. MIDAMOR [Concomitant]
     Route: 065
  15. HYDRODIURIL [Concomitant]
     Route: 065
  16. PREDNISOLONE [Concomitant]
     Route: 065
     Dates: start: 20071210, end: 20071219

REACTIONS (5)
  - ACCIDENTAL OVERDOSE [None]
  - CONFUSIONAL STATE [None]
  - DEATH [None]
  - RENAL FAILURE [None]
  - SOMNOLENCE [None]
